FAERS Safety Report 10332034 (Version 1)
Quarter: 2014Q3

REPORT INFORMATION
  Report Type: Spontaneous
  Country: US (occurrence: US)
  Receive Date: 20140722
  Receipt Date: 20140722
  Transmission Date: 20150326
  Serious: Yes (Other)
  Sender: FDA-Public Use
  Company Number: US-BAYER-2014-109602

PATIENT
  Age: 30 Year
  Sex: Female

DRUGS (1)
  1. SKYLA [Suspect]
     Active Substance: LEVONORGESTREL
     Indication: CONTRACEPTION
     Dosage: UNK
     Route: 015
     Dates: start: 201407

REACTIONS (10)
  - Anxiety [None]
  - Abnormal behaviour [None]
  - Abdominal pain lower [None]
  - Pain [None]
  - Heart rate increased [None]
  - Feeling hot [None]
  - Insomnia [None]
  - Genital haemorrhage [None]
  - Dyspareunia [None]
  - Mood swings [None]
